FAERS Safety Report 4944949-X (Version None)
Quarter: 2006Q1

REPORT INFORMATION
  Report Type: 
  Country: None (occurrence: None)
  Receive Date: 20060117
  Receipt Date: 20041130
  Transmission Date: 20060701
  Serious: Yes (Hospitalization)
  Sender: FDA-Public Use
  Company Number: A03200404029

PATIENT
  Age: 58 Year
  Sex: Male

DRUGS (6)
  1. PLAVIX [Suspect]
     Indication: MYOCARDIAL INFARCTION
     Dosage: 75 MG QD - ORAL
     Route: 048
     Dates: start: 20020101
  2. AMIODARONE HCL [Concomitant]
  3. ACETYLSALICYLIC ACID SRT [Concomitant]
  4. ANTIHYPERTENSIVE [Concomitant]
  5. SIMVASTATIN [Concomitant]
  6. LANSOPRAZOLE [Concomitant]

REACTIONS (2)
  - DYSPEPSIA [None]
  - MYOCARDIAL INFARCTION [None]
